FAERS Safety Report 15190657 (Version 2)
Quarter: 2018Q3

REPORT INFORMATION
  Report Type: Spontaneous
  Country: US (occurrence: US)
  Receive Date: 20180724
  Receipt Date: 20180803
  Transmission Date: 20181010
  Serious: Yes (Hospitalization)
  Sender: FDA-Public Use
  Company Number: US-PFIZER INC-2018292032

PATIENT
  Age: 78 Year
  Sex: Male
  Weight: 99 kg

DRUGS (4)
  1. TIKOSYN [Suspect]
     Active Substance: DOFETILIDE
     Indication: TACHYCARDIA
     Dosage: 1000 UG, DAILY (500 MCG, CAPSULE, ONCE IN THE MORNING, ONCE IN THE EVENING)
     Route: 048
     Dates: end: 20180716
  2. TIKOSYN [Suspect]
     Active Substance: DOFETILIDE
     Indication: ATRIAL FIBRILLATION
     Dosage: 1 DF, DAILY (ONE TIKOSYN A DAY)UNK
  3. TIKOSYN [Suspect]
     Active Substance: DOFETILIDE
     Indication: CEREBROVASCULAR ACCIDENT PROPHYLAXIS
  4. ELIQUIS [Suspect]
     Active Substance: APIXABAN
     Indication: CEREBROVASCULAR ACCIDENT PROPHYLAXIS
     Dosage: 5 MG, 2X/DAY (BID)

REACTIONS (7)
  - Intentional product use issue [Unknown]
  - Malaise [Unknown]
  - Chest pain [Unknown]
  - Movement disorder [Unknown]
  - Erythema [Unknown]
  - Tachycardia [Unknown]
  - Chest discomfort [Unknown]
